FAERS Safety Report 20076354 (Version 5)
Quarter: 2022Q2

REPORT INFORMATION
  Report Type: Report from Study
  Country: CA (occurrence: CA)
  Receive Date: 20211116
  Receipt Date: 20220502
  Transmission Date: 20220721
  Serious: Yes (Other)
  Sender: FDA-Public Use
  Company Number: CA-NOVARTISPH-NVSC2021CA258842

PATIENT
  Sex: Female
  Weight: 21.315 kg

DRUGS (7)
  1. HYRIMOZ [Suspect]
     Active Substance: ADALIMUMAB-ADAZ
     Indication: Crohn^s disease
     Dosage: 160 MG
     Route: 065
     Dates: start: 20210721
  2. HYRIMOZ [Suspect]
     Active Substance: ADALIMUMAB-ADAZ
     Dosage: UNK (WEEKLY, Q10 DAYS)
     Route: 058
  3. HYRIMOZ [Suspect]
     Active Substance: ADALIMUMAB-ADAZ
     Dosage: UNK, QW (Q7DAYS)
     Route: 065
     Dates: start: 20211006
  4. HYRIMOZ [Suspect]
     Active Substance: ADALIMUMAB-ADAZ
     Dosage: 40 MG, QW
     Route: 058
  5. METHOTREXATE SODIUM [Concomitant]
     Active Substance: METHOTREXATE SODIUM
     Indication: Product used for unknown indication
     Dosage: UNK
     Route: 065
  6. IMURAN [Concomitant]
     Active Substance: AZATHIOPRINE
     Indication: Product used for unknown indication
     Dosage: UNK
     Route: 065
  7. IMODIUM [Concomitant]
     Active Substance: LOPERAMIDE HYDROCHLORIDE
     Indication: Product used for unknown indication
     Dosage: UNK
     Route: 065

REACTIONS (26)
  - Eye haemorrhage [Unknown]
  - Cataract [Unknown]
  - Haemorrhagic cyst [Recovered/Resolved]
  - Cellulitis [Unknown]
  - Episcleritis [Recovering/Resolving]
  - Toothache [Unknown]
  - Mouth ulceration [Unknown]
  - Dermatitis [Recovering/Resolving]
  - Irritability [Unknown]
  - Arthralgia [Recovering/Resolving]
  - Eye inflammation [Unknown]
  - Ocular hyperaemia [Unknown]
  - Crying [Unknown]
  - Eyelid cyst [Recovered/Resolved]
  - Noninfective gingivitis [Unknown]
  - Vulvitis [Not Recovered/Not Resolved]
  - Fatigue [Recovering/Resolving]
  - Eye pain [Unknown]
  - Swelling face [Recovering/Resolving]
  - Cyst rupture [Recovered/Resolved]
  - Rash [Unknown]
  - Skin infection [Unknown]
  - Tooth abscess [Unknown]
  - Infection susceptibility increased [Unknown]
  - Pruritus [Unknown]
  - Weight increased [Recovering/Resolving]
